FAERS Safety Report 5511521-2 (Version None)
Quarter: 2007Q4

REPORT INFORMATION
  Report Type: 
  Country: None (occurrence: None)
  Receive Date: 20071109
  Receipt Date: 20071107
  Transmission Date: 20080405
  Serious: Yes (Hospitalization)
  Sender: FDA-Public Use
  Company Number: B0494233A

PATIENT
  Age: 69 Year
  Sex: Female

DRUGS (16)
  1. ROSIGLITAZONE [Suspect]
     Dosage: 4MG PER DAY
     Route: 048
     Dates: start: 20070501, end: 20071001
  2. FUROSEMIDE [Concomitant]
     Dosage: 80MG PER DAY
     Route: 048
  3. ISOSORBIDE DINITRATE [Concomitant]
     Dosage: 120MG PER DAY
     Route: 048
  4. LANSOPRAZOLE [Concomitant]
     Dosage: 30MG PER DAY
     Route: 048
  5. QUININE SULFATE [Concomitant]
     Dosage: 300MG PER DAY
     Route: 048
  6. CITALOPRAM [Concomitant]
     Dosage: 20MG PER DAY
  7. PRAVASTATIN [Concomitant]
     Dosage: 40MG PER DAY
  8. NICORANDIL [Concomitant]
     Dosage: 60MG PER DAY
  9. CLOPIDOGREL [Concomitant]
     Dosage: 75MG PER DAY
  10. CANDESARTAN CILEXETIL [Concomitant]
     Dosage: 4MG PER DAY
  11. SPIRONOLACTONE [Concomitant]
     Dosage: 25MG PER DAY
  12. ALLOPURINOL [Concomitant]
     Dosage: 200MG PER DAY
  13. GLICLAZIDE [Concomitant]
     Dosage: 320MG PER DAY
  14. TIOTROPIUM BROMIDE [Concomitant]
     Dosage: 18MCG PER DAY
  15. VENTOLIN [Concomitant]
  16. AMLODIPINE [Concomitant]
     Dosage: 10MG PER DAY

REACTIONS (2)
  - CARDIAC FAILURE CONGESTIVE [None]
  - CHRONIC OBSTRUCTIVE PULMONARY DISEASE [None]
